FAERS Safety Report 4949307-X (Version None)
Quarter: 2006Q1

REPORT INFORMATION
  Report Type: 
  Country: None (occurrence: None)
  Receive Date: 20060321
  Receipt Date: 20060315
  Transmission Date: 20060701
  Serious: Yes (Life-Threatening, Hospitalization)
  Sender: FDA-Public Use
  Company Number: FR-BRACCO-BRO-009889

PATIENT
  Age: 69 Year
  Sex: Female

DRUGS (8)
  1. MULTIHANCE [Suspect]
     Route: 042
     Dates: start: 20060202, end: 20060202
  2. GLUCOPHAGE                         /00082702/ [Concomitant]
     Route: 050
  3. NOVONORM [Concomitant]
     Route: 050
  4. TRIATEC [Concomitant]
     Route: 050
  5. BISOPROLOL 10 MG [Concomitant]
     Route: 050
  6. KARDEGIC                           /00002703/ [Concomitant]
     Route: 050
  7. ALDACTONE                          /00006201/ [Concomitant]
     Route: 050
  8. LASILIX [Concomitant]
     Route: 050

REACTIONS (3)
  - ANGIONEUROTIC OEDEMA [None]
  - CIRCULATORY COLLAPSE [None]
  - SHOCK [None]
